FAERS Safety Report 8826151 (Version 2)
Quarter: 2012Q4

REPORT INFORMATION
  Report Type: Report from Study
  Country: FR (occurrence: FR)
  Receive Date: 20121008
  Receipt Date: 20121212
  Transmission Date: 20130627
  Serious: Yes (Hospitalization, Other)
  Sender: FDA-Public Use
  Company Number: FR-SANOFI-AVENTIS-2012SA036917

PATIENT
  Age: 57 Year
  Sex: Male
  Weight: 58 kg

DRUGS (4)
  1. CABAZITAXEL [Suspect]
     Indication: HEAD AND NECK CANCER
     Route: 042
     Dates: start: 20120511, end: 20120511
  2. TAHOR [Concomitant]
     Indication: HYPERCHOLESTEROLEMIA
     Route: 048
     Dates: start: 20120302
  3. DAFALGAN [Concomitant]
     Indication: PAIN
     Route: 048
     Dates: start: 20120302
  4. MAGNE-B6 [Concomitant]
     Indication: MAGNESIUM DEFICIENCY
     Route: 048
     Dates: start: 20120302

REACTIONS (3)
  - Anaemia [Unknown]
  - Pneumonia [Recovered/Resolved]
  - Dyspnoea [Recovered/Resolved with Sequelae]
